FAERS Safety Report 8193328-3 (Version None)
Quarter: 2012Q1

REPORT INFORMATION
  Report Type: 
  Country: None (occurrence: None)
  Receive Date: 20120308
  Receipt Date: 20120228
  Transmission Date: 20120608
  Serious: Yes (Other)
  Sender: FDA-Public Use
  Company Number: LV-JNJFOC-20120112447

PATIENT
  Age: 55 Year
  Sex: Male

DRUGS (5)
  1. REMICADE [Suspect]
     Indication: ANKYLOSING SPONDYLITIS
     Dosage: 1ST DOSE
     Route: 042
     Dates: start: 20111123
  2. REMICADE [Suspect]
     Dosage: 3RD DOSE
     Route: 042
     Dates: start: 20120104
  3. AMLODIPINE [Concomitant]
     Route: 065
  4. REMICADE [Suspect]
     Dosage: 2ND DOSE
     Route: 042
     Dates: start: 20111206
  5. OLMESARTAN MEDOXOMIL [Concomitant]
     Route: 065

REACTIONS (1)
  - CERVICOBRACHIAL SYNDROME [None]
